FAERS Safety Report 4829185-X (Version None)
Quarter: 2005Q4

REPORT INFORMATION
  Report Type: 
  Country: None (occurrence: None)
  Receive Date: 20051028
  Receipt Date: 20050721
  Transmission Date: 20060501
  Serious: Yes (Hospitalization)
  Sender: FDA-Public Use
  Company Number: US_0411107655

PATIENT
  Age: 45 Year
  Sex: Female
  Weight: 102 kg

DRUGS (26)
  1. ZYPREXA [Suspect]
     Dosage: 25 MG
     Dates: start: 19990626
  2. PROZAC [Suspect]
  3. FLUOXETINE HYDROCHLORIDE [Concomitant]
  4. SEROQUEL [Concomitant]
  5. WELLBUTRIN [Concomitant]
  6. REMERON (MIRTAZAPINE ORIFARM) [Concomitant]
  7. LORAZEPAM [Concomitant]
  8. HALDOL [Concomitant]
  9. MODAFINIL [Concomitant]
  10. NAPROXEN SODIUM [Concomitant]
  11. CLONAZEPAM [Concomitant]
  12. ATORVASTATIN CALCIUM [Concomitant]
  13. CELECOXIB [Concomitant]
  14. NITROBID (NITROFURANTOIN) [Concomitant]
  15. HYDROCHLOROTHIAZIDE [Concomitant]
  16. ALPRAZOLAM [Concomitant]
  17. ZANAFLEX [Concomitant]
  18. RANITIDINE [Concomitant]
  19. TOPAMAX [Concomitant]
  20. HYDROXYZINE [Concomitant]
  21. METFORMIN [Concomitant]
  22. IMIPRAMINE [Concomitant]
  23. CENESTIN [Concomitant]
  24. QUETIAPINE FUMARATE [Concomitant]
  25. SYMBYAX [Suspect]
     Dates: end: 20040709
  26. ZYPREXA [Suspect]
     Dosage: 25 MG
     Dates: start: 20040929

REACTIONS (7)
  - BLOOD CHOLESTEROL ABNORMAL [None]
  - CARDIAC DISORDER [None]
  - HYPERTENSION [None]
  - HYSTERECTOMY [None]
  - OBESITY [None]
  - PRESCRIBED OVERDOSE [None]
  - SALPINGO-OOPHORECTOMY BILATERAL [None]
